FAERS Safety Report 5904674-5 (Version None)
Quarter: 2008Q3

REPORT INFORMATION
  Report Type: 
  Country: None (occurrence: None)
  Receive Date: 20080909
  Receipt Date: 20080411
  Transmission Date: 20090109
  Serious: Yes (Disabling, Other)
  Sender: FDA-Public Use
  Company Number: 163-20785-08030785

PATIENT
  Age: 54 Year
  Sex: Female

DRUGS (10)
  1. THALOMID [Suspect]
     Indication: MULTIPLE MYELOMA
     Dosage: 50 MG, DAILY, ORAL : ORAL : ORAL
     Route: 048
     Dates: start: 20070320, end: 20071128
  2. THALOMID [Suspect]
     Indication: NEPHROTIC SYNDROME
     Dosage: 50 MG, DAILY, ORAL : ORAL : ORAL
     Route: 048
     Dates: start: 20070320, end: 20071128
  3. THALOMID [Suspect]
     Indication: MULTIPLE MYELOMA
     Dosage: 50 MG, DAILY, ORAL : ORAL : ORAL
     Route: 048
     Dates: start: 20071101, end: 20080301
  4. THALOMID [Suspect]
     Indication: NEPHROTIC SYNDROME
     Dosage: 50 MG, DAILY, ORAL : ORAL : ORAL
     Route: 048
     Dates: start: 20071101, end: 20080301
  5. THALOMID [Suspect]
     Indication: MULTIPLE MYELOMA
     Dosage: 50 MG, DAILY, ORAL : ORAL : ORAL
     Route: 048
     Dates: start: 20080301, end: 20080312
  6. THALOMID [Suspect]
     Indication: NEPHROTIC SYNDROME
     Dosage: 50 MG, DAILY, ORAL : ORAL : ORAL
     Route: 048
     Dates: start: 20080301, end: 20080312
  7. LIPITOR [Concomitant]
  8. LASIX [Concomitant]
  9. VELCADE [Concomitant]
  10. COUMADIN [Concomitant]

REACTIONS (7)
  - CATHETER RELATED INFECTION [None]
  - CEREBROVASCULAR ACCIDENT [None]
  - DISEASE PROGRESSION [None]
  - DRUG TOXICITY [None]
  - NEUROPATHY PERIPHERAL [None]
  - PULMONARY EMBOLISM [None]
  - SUBCLAVIAN VEIN THROMBOSIS [None]
